FAERS Safety Report 10143825 (Version 1)
Quarter: 2014Q2

REPORT INFORMATION
  Report Type: Spontaneous
  Country: DE (occurrence: DE)
  Receive Date: 20140430
  Receipt Date: 20140430
  Transmission Date: 20141212
  Serious: Yes (Death, Hospitalization)
  Sender: FDA-Public Use
  Company Number: DE-GLAXOSMITHKLINE-D0083783A

PATIENT
  Age: 70 Year
  Sex: Female

DRUGS (2)
  1. FLUTIDE FORTE [Suspect]
     Route: 055
  2. CORTISONE [Concomitant]
     Route: 065

REACTIONS (2)
  - Death [Fatal]
  - Femur fracture [Unknown]
